FAERS Safety Report 8851692 (Version 1)
Quarter: 2012Q4

REPORT INFORMATION
  Report Type: Spontaneous
  Country: US (occurrence: None)
  Receive Date: 20121018
  Receipt Date: 20121018
  Transmission Date: 20130627
  Serious: Yes (Other)
  Sender: FDA-Public Use
  Company Number: None

PATIENT
  Age: 46 Year
  Sex: Female
  Weight: 54.43 kg

DRUGS (1)
  1. AMITRIPTYLINE [Suspect]
     Indication: SHINGLES
     Route: 048
     Dates: start: 20121010, end: 20121014

REACTIONS (6)
  - Drug ineffective [None]
  - Irritability [None]
  - Judgement impaired [None]
  - Fall [None]
  - Activities of daily living impaired [None]
  - Insomnia [None]
